FAERS Safety Report 8983134 (Version 1)
Quarter: 2012Q4

REPORT INFORMATION
  Report Type: 
  Country: JP (occurrence: JP)
  Receive Date: 20121224
  Receipt Date: 20121224
  Transmission Date: 20130627
  Serious: Yes (Death)
  Sender: FDA-Public Use
  Company Number: PHHY2012JP110366

PATIENT
  Age: 73 Year
  Sex: Male

DRUGS (3)
  1. VOLTAREN [Suspect]
     Indication: PAIN
     Route: 054
     Dates: start: 20121115
  2. AMINO ACIDS NOS W/ELECTROLYTES NOS/VITAMINS N [Concomitant]
     Dosage: 1500 ml, UNK
     Route: 042
     Dates: start: 20121115
  3. HEPAFLUSH [Concomitant]
     Dosage: 10 ml, UNK
     Route: 042
     Dates: start: 20121115

REACTIONS (3)
  - Bile duct cancer [Fatal]
  - Oliguria [Recovered/Resolved]
  - Dysuria [Unknown]
